FAERS Safety Report 7474111-0 (Version None)
Quarter: 2011Q2

REPORT INFORMATION
  Report Type: 
  Country: None (occurrence: None)
  Receive Date: 20110511
  Receipt Date: 20110502
  Transmission Date: 20111010
  Serious: Yes (Death)
  Sender: FDA-Public Use
  Company Number: US-WATSON-2011-06069

PATIENT
  Sex: Male

DRUGS (4)
  1. WELLBUTRIN [Suspect]
     Indication: DEPRESSION
     Dosage: 150 MG, DAILY
     Route: 048
     Dates: start: 20110310, end: 20110316
  2. TRAZODONE HYDROCHLORIDE [Suspect]
     Indication: INSOMNIA
     Dosage: 50 MG, ON AND OFF USE
     Route: 048
     Dates: start: 20110101, end: 20110316
  3. ZOLPIDEM TARTRATE [Suspect]
     Indication: INSOMNIA
     Dosage: 10 MG, DAILY
     Route: 048
     Dates: start: 20101101, end: 20110316
  4. CELEXA [Suspect]
     Indication: DEPRESSION
     Dosage: 20 MG, DAILY
     Route: 048
     Dates: start: 20110310, end: 20110316

REACTIONS (8)
  - DROWNING [None]
  - DRUG INEFFECTIVE [None]
  - ANXIETY [None]
  - TREMOR [None]
  - EMOTIONAL DISTRESS [None]
  - FALL [None]
  - PARANOIA [None]
  - DRUG LEVEL INCREASED [None]
